FAERS Safety Report 23572947 (Version 2)
Quarter: 2024Q2

REPORT INFORMATION
  Report Type: Report from Study
  Country: CA (occurrence: CA)
  Receive Date: 20240227
  Receipt Date: 20240624
  Transmission Date: 20240715
  Serious: Yes (Death, Hospitalization, Other)
  Sender: FDA-Public Use
  Company Number: CA-ABBVIE-5655774

PATIENT
  Sex: Female
  Weight: 90 kg

DRUGS (23)
  1. VENETOCLAX [Suspect]
     Active Substance: VENETOCLAX
     Indication: Acute myeloid leukaemia
     Dosage: FORM STRENGTH UNITS:10 MILLIGRAM?FREQUENCY TEXT: DAILY
     Route: 048
     Dates: start: 20240109, end: 20240117
  2. APIXABAN [Concomitant]
     Active Substance: APIXABAN
     Indication: Thrombosis
     Route: 048
  3. ROSUVASTATIN [Concomitant]
     Active Substance: ROSUVASTATIN
     Indication: Dyslipidaemia
     Route: 048
  4. SENNOSIDES [Concomitant]
     Active Substance: SENNOSIDES
     Indication: Product used for unknown indication
     Dosage: FORM STRENGTH:8.6 MILLIGRAM
     Route: 048
  5. MAGNESIUM SULFATE [Concomitant]
     Active Substance: MAGNESIUM SULFATE\MAGNESIUM SULFATE HEPTAHYDRATE
     Indication: Product used for unknown indication
     Dosage: 500 MG/ML (50%), FREQUENCY TEXT: ONCE
     Route: 042
  6. CLOPIDOGREL [Concomitant]
     Active Substance: CLOPIDOGREL BISULFATE
     Indication: Product used for unknown indication
     Route: 048
  7. VALTREX [Concomitant]
     Active Substance: VALACYCLOVIR HYDROCHLORIDE
     Indication: Antiviral prophylaxis
     Route: 048
  8. METOPROLOL [Concomitant]
     Active Substance: METOPROLOL
     Indication: Atrial fibrillation
     Route: 048
  9. VENLAFAXINE [Concomitant]
     Active Substance: VENLAFAXINE HYDROCHLORIDE
     Indication: Product used for unknown indication
     Dosage: FORM STRENGTH:75 MILLIGRAM
     Route: 048
  10. PANTOPRAZOLE SODIUM [Concomitant]
     Active Substance: PANTOPRAZOLE SODIUM
     Indication: Product used for unknown indication
  11. POSACONAZOLE [Concomitant]
     Active Substance: POSACONAZOLE
     Indication: Product used for unknown indication
     Route: 048
  12. POLYETHYLENE GLYCOL [Concomitant]
     Active Substance: POLYETHYLENE GLYCOL
     Indication: Constipation
     Dosage: PEG STOOL SOFTNER?FORM STRENGTH UNITS: 238 GM,?FREQUENCY TEXT: DAILY
     Route: 048
  13. QUETIAPINE [Concomitant]
     Active Substance: QUETIAPINE
     Indication: Sleep disorder
     Route: 048
  14. AZACITIDINE [Concomitant]
     Active Substance: AZACITIDINE
     Indication: Chemotherapy
     Route: 058
     Dates: start: 20240109, end: 20240117
  15. LEVOFLOXACIN [Concomitant]
     Active Substance: LEVOFLOXACIN
     Indication: Product used for unknown indication
     Dosage: DAILY
     Route: 048
  16. PLAVIX [Concomitant]
     Active Substance: CLOPIDOGREL BISULFATE
     Indication: Coronary artery disease
     Dosage: FREQUENCY TEXT: EVERY DAY
     Route: 048
  17. EFFEXOR [Concomitant]
     Active Substance: VENLAFAXINE HYDROCHLORIDE
     Indication: Depression
     Dosage: FREQUENCY TEXT: EVERY DAY
     Route: 048
  18. ZOFRAN [Concomitant]
     Active Substance: ONDANSETRON HYDROCHLORIDE
     Indication: Nausea
     Route: 048
  19. GABAPENTIN [Concomitant]
     Active Substance: GABAPENTIN
     Indication: Neuropathy peripheral
     Route: 048
  20. ACETAMINOPHEN [Concomitant]
     Active Substance: ACETAMINOPHEN
     Indication: Bone pain
     Dosage: FORM STRENGTH:650 MILLIGRAM,?FREQUENCY TEXT: 0-3 DOSE PER DAY
     Route: 048
  21. VYXEOS [Concomitant]
     Active Substance: CYTARABINE\DAUNORUBICIN
     Indication: Product used for unknown indication
  22. POTASSIUM CHLORIDE [Concomitant]
     Active Substance: POTASSIUM CHLORIDE
     Indication: Product used for unknown indication
     Dosage: FORM STRENGTH: 1500 MG
  23. CEFTAZIDIME [Concomitant]
     Active Substance: CEFTAZIDIME
     Indication: Product used for unknown indication

REACTIONS (30)
  - Respiratory failure [Fatal]
  - Diarrhoea [Unknown]
  - Nausea [Unknown]
  - Atrial fibrillation [Unknown]
  - Pyrexia [Unknown]
  - Cardiac failure congestive [Unknown]
  - Vomiting [Unknown]
  - Hypotension [Unknown]
  - Sepsis [Unknown]
  - Febrile neutropenia [Unknown]
  - Vasculitis [Unknown]
  - Pericarditis [Unknown]
  - Depressed level of consciousness [Unknown]
  - Respiratory failure [Unknown]
  - Cardiac murmur [Unknown]
  - Feeling hot [Unknown]
  - Labile blood pressure [Unknown]
  - Cytopenia [Unknown]
  - Coma [Unknown]
  - Oxygen saturation decreased [Unknown]
  - Positive end-expiratory pressure [Unknown]
  - Oliguria [Recovering/Resolving]
  - Acute myeloid leukaemia refractory [Unknown]
  - Blast cells present [Unknown]
  - Peripheral ischaemia [Unknown]
  - Unevaluable event [Unknown]
  - Renal failure [Unknown]
  - Shock [Unknown]
  - Hypoxia [Unknown]
  - Pneumonia [Unknown]

NARRATIVE: CASE EVENT DATE: 20240101
